FAERS Safety Report 9052331 (Version 1)
Quarter: 2013Q1

REPORT INFORMATION
  Report Type: Spontaneous
  Country: US (occurrence: US)
  Receive Date: 20130206
  Receipt Date: 20130206
  Transmission Date: 20140127
  Serious: Yes (Hospitalization)
  Sender: FDA-Public Use
  Company Number: US-JNJFOC-20130115208

PATIENT
  Sex: Female
  Weight: 55.34 kg

DRUGS (3)
  1. REMICADE [Suspect]
     Indication: CROHN^S DISEASE
     Route: 042
  2. REMICADE [Suspect]
     Indication: CROHN^S DISEASE
     Route: 042
     Dates: start: 2000, end: 2008
  3. PENTASA [Concomitant]
     Indication: CROHN^S DISEASE
     Route: 065

REACTIONS (3)
  - Peripheral artery thrombosis [Not Recovered/Not Resolved]
  - Arthritis [Not Recovered/Not Resolved]
  - Rash [Unknown]
